FAERS Safety Report 6074533-9 (Version None)
Quarter: 2009Q1

REPORT INFORMATION
  Report Type: 
  Country: None (occurrence: None)
  Receive Date: 20090206
  Receipt Date: 20090129
  Transmission Date: 20090719
  Serious: Yes (Death)
  Sender: FDA-Public Use
  Company Number: SPV1-2009-00151

PATIENT
  Age: 91 Year
  Sex: Female

DRUGS (1)
  1. AGRYLIN [Suspect]
     Indication: ESSENTIAL THROMBOCYTHAEMIA
     Dosage: 0.5 MG, 1X/DAY:QD
     Dates: start: 20070418, end: 20070902

REACTIONS (1)
  - DEATH [None]
